FAERS Safety Report 17307284 (Version 1)
Quarter: 2020Q1

REPORT INFORMATION
  Report Type: Spontaneous
  Country: US (occurrence: US)
  Receive Date: 20200123
  Receipt Date: 20200123
  Transmission Date: 20200409
  Serious: Yes (Death, Life-Threatening, Hospitalization, Other)
  Sender: FDA-Public Use
  Company Number: US-ALKEM LABORATORIES LIMITED-US-ALKEM-2020-00053

PATIENT
  Age: 62 Year
  Sex: Female

DRUGS (2)
  1. PREDNISONE. [Suspect]
     Active Substance: PREDNISONE
     Indication: SYSTEMIC LUPUS ERYTHEMATOSUS
     Dosage: UNK
     Route: 065
  2. MYCOPHENOLATE MOFETIL. [Suspect]
     Active Substance: MYCOPHENOLATE MOFETIL
     Indication: SYSTEMIC LUPUS ERYTHEMATOSUS
     Dosage: UNK
     Route: 065

REACTIONS (9)
  - Pneumonia bacterial [Fatal]
  - Pneumothorax [Fatal]
  - Varicella zoster virus infection [Fatal]
  - Herpes zoster disseminated [Fatal]
  - Hypotension [Unknown]
  - Septic shock [Fatal]
  - Acute respiratory distress syndrome [Fatal]
  - Stenotrophomonas infection [Fatal]
  - Multiple organ dysfunction syndrome [Fatal]
